FAERS Safety Report 20825828 (Version 2)
Quarter: 2022Q4

REPORT INFORMATION
  Report Type: Spontaneous
  Country: US (occurrence: None)
  Receive Date: 20220513
  Receipt Date: 20221110
  Transmission Date: 20230112
  Serious: No
  Sender: FDA-Public Use
  Company Number: 2022A171576

PATIENT
  Sex: Female

DRUGS (6)
  1. TEZSPIRE [Suspect]
     Active Substance: TEZEPELUMAB-EKKO
     Indication: Blood uric acid increased
     Route: 058
     Dates: start: 20220428
  2. MEDROL [Concomitant]
     Active Substance: METHYLPREDNISOLONE
  3. BENADRYL [Concomitant]
     Active Substance: DIPHENHYDRAMINE HYDROCHLORIDE
  4. BUDESONIDE\FORMOTEROL [Concomitant]
     Active Substance: BUDESONIDE\FORMOTEROL
  5. LAMA [Concomitant]
  6. OXYGEN [Concomitant]
     Active Substance: OXYGEN

REACTIONS (2)
  - Rash erythematous [Unknown]
  - Feeling hot [Unknown]

NARRATIVE: CASE EVENT DATE: 20220429
